FAERS Safety Report 8158887-5 (Version None)
Quarter: 2012Q1

REPORT INFORMATION
  Report Type: 
  Country: None (occurrence: None)
  Receive Date: 20120223
  Receipt Date: 20120217
  Transmission Date: 20120608
  Serious: Yes (Death, Hospitalization, Other)
  Sender: FDA-Public Use
  Company Number: IE-BRISTOL-MYERS SQUIBB COMPANY-15947039

PATIENT
  Age: 52 Year
  Sex: Female

DRUGS (7)
  1. FOLIC ACID [Concomitant]
     Route: 048
  2. SOLPADOL [Concomitant]
     Dosage: 1DF: 2TABLETS. 3 TIMES A DAY.
     Route: 048
  3. ORENCIA [Suspect]
     Indication: RHEUMATOID ARTHRITIS
     Dosage: ORENCIA 250MG.
     Route: 042
     Dates: start: 20110728
  4. MELOXICAM [Concomitant]
  5. ARAVA [Concomitant]
  6. OMEPRAZOLE [Concomitant]
     Route: 048
  7. DOMPERIDONE [Concomitant]
     Dosage: PERDAY

REACTIONS (6)
  - INFECTION [None]
  - MYOCARDIAL INFARCTION [None]
  - HAEMORRHAGE [None]
  - DRUG ADMINISTRATION ERROR [None]
  - HYPERTENSION [None]
  - MULTI-ORGAN FAILURE [None]
